FAERS Safety Report 5085709-1 (Version None)
Quarter: 2006Q3

REPORT INFORMATION
  Report Type: 
  Country: None (occurrence: None)
  Receive Date: 20060822
  Receipt Date: 20060206
  Transmission Date: 20061208
  Serious: Yes (Other)
  Sender: FDA-Public Use
  Company Number: US-ROCHE-435347

PATIENT
  Age: 62 Year
  Sex: Male
  Weight: 85.3 kg

DRUGS (8)
  1. PEGASYS [Suspect]
     Route: 058
     Dates: start: 20051210
  2. PEGASYS [Suspect]
     Dosage: PEG INTERFERON ALFA 2A DOSE WAS CUT IN HALF.
     Route: 058
     Dates: start: 20060315
  3. COPEGUS [Suspect]
     Dosage: 600 MG IN THE MORNING, 600 MG IN THE EVENING.
     Route: 048
     Dates: start: 20051210
  4. COPEGUS [Suspect]
     Route: 048
  5. RIBAVIRIN [Suspect]
     Indication: DRUG USE FOR UNKNOWN INDICATION
     Route: 065
     Dates: start: 20051210, end: 20060715
  6. OXYCODONE HCL [Concomitant]
     Indication: BACK PAIN
     Dosage: MAXIMALLY 3 TABLETS PER DAY.
     Route: 048
     Dates: start: 19910615
  7. ATIVAN [Concomitant]
     Indication: POST-TRAUMATIC STRESS DISORDER
     Route: 048
     Dates: start: 19910615
  8. NEUPOGEN [Concomitant]

REACTIONS (20)
  - ABSCESS [None]
  - CHILLS [None]
  - COUGH [None]
  - DRUG INEFFECTIVE [None]
  - DYSPNOEA [None]
  - FATIGUE [None]
  - HEADACHE [None]
  - HYPOTHYROIDISM [None]
  - INCREASED UPPER AIRWAY SECRETION [None]
  - MIGRAINE [None]
  - OPEN WOUND [None]
  - PARANASAL SINUS HYPERSECRETION [None]
  - PHOTOPSIA [None]
  - PLATELET COUNT DECREASED [None]
  - PRURITUS [None]
  - SKIN LESION [None]
  - SKIN ULCER [None]
  - THINKING ABNORMAL [None]
  - VENTRICULAR TACHYCARDIA [None]
  - WHITE BLOOD CELL COUNT DECREASED [None]
